FAERS Safety Report 6764354-3 (Version None)
Quarter: 2010Q2

REPORT INFORMATION
  Report Type: 
  Country: None (occurrence: None)
  Receive Date: 20100610
  Receipt Date: 20100602
  Transmission Date: 20101027
  Serious: Yes (Life-Threatening)
  Sender: FDA-Public Use
  Company Number: CA-PFIZER INC-2010069920

PATIENT
  Age: 37 Year
  Sex: Male

DRUGS (3)
  1. LIPITOR [Suspect]
     Dosage: 600 MG, UNK
  2. GLYBURIDE [Suspect]
     Dosage: 150 MG, UNK
  3. METFORMIN [Suspect]
     Dosage: 4.5 G, UNK

REACTIONS (13)
  - ANION GAP ABNORMAL [None]
  - BLOOD LACTIC ACID INCREASED [None]
  - BRADYCARDIA [None]
  - DISORIENTATION [None]
  - HYPERTENSION [None]
  - HYPOGLYCAEMIA [None]
  - HYPOTENSION [None]
  - INTENTIONAL OVERDOSE [None]
  - LETHARGY [None]
  - METABOLIC ACIDOSIS [None]
  - RENAL FAILURE [None]
  - RESPIRATORY FAILURE [None]
  - VENTRICULAR TACHYCARDIA [None]
